FAERS Safety Report 4635853-5 (Version None)
Quarter: 2005Q2

REPORT INFORMATION
  Report Type: 
  Country: None (occurrence: None)
  Receive Date: 20050413
  Receipt Date: 20050401
  Transmission Date: 20051028
  Serious: Yes (Hospitalization, Other)
  Sender: FDA-Public Use
  Company Number: KII-2005-0015796

PATIENT
  Age: 52 Year
  Sex: Female

DRUGS (3)
  1. MORPHINE SULFATE [Suspect]
     Indication: PAIN
     Dosage: INTRATHECAL
     Route: 037
  2. BUPIVACAINE [Suspect]
     Indication: PAIN
     Dosage: INTRATHECAL
     Route: 037
  3. CLONIDINE [Suspect]
     Indication: PAIN
     Dosage: INTRATHECAL
     Route: 037

REACTIONS (8)
  - ABNORMAL BEHAVIOUR [None]
  - BREATH SOUNDS DECREASED [None]
  - CONFUSIONAL STATE [None]
  - COORDINATION ABNORMAL [None]
  - DYSARTHRIA [None]
  - IMPULSIVE BEHAVIOUR [None]
  - OXYGEN SATURATION DECREASED [None]
  - RESPIRATORY ARREST [None]
